FAERS Safety Report 8568144-0 (Version None)
Quarter: 2012Q3

REPORT INFORMATION
  Report Type: 
  Country: None (occurrence: None)
  Receive Date: 20120803
  Receipt Date: 20120709
  Transmission Date: 20120928
  Serious: No
  Sender: FDA-Public Use
  Company Number: US-ABBOTT-12P-163-0954365-00

PATIENT
  Sex: Female
  Weight: 4.2 kg

DRUGS (9)
  1. NIASPAN [Suspect]
     Indication: FAMILIAL RISK FACTOR
     Dates: start: 20120609
  2. VALTREX [Concomitant]
     Indication: GENITAL HERPES
  3. NEXIUM [Concomitant]
     Indication: GASTROOESOPHAGEAL REFLUX DISEASE
  4. M.V.I. [Concomitant]
     Indication: PRODUCT USED FOR UNKNOWN INDICATION
  5. CALCIUM [Concomitant]
     Indication: PRODUCT USED FOR UNKNOWN INDICATION
  6. HOMEOPATHIC VITAMINS [Concomitant]
     Indication: PRODUCT USED FOR UNKNOWN INDICATION
  7. VITAMIN D [Concomitant]
     Indication: PRODUCT USED FOR UNKNOWN INDICATION
  8. IRON [Concomitant]
     Indication: ANAEMIA
  9. VIT E [Concomitant]
     Indication: PRODUCT USED FOR UNKNOWN INDICATION

REACTIONS (3)
  - ASTHENIA [None]
  - FLUSHING [None]
  - ERYTHEMA [None]
